FAERS Safety Report 9904741 (Version 2)
Quarter: 2014Q1

REPORT INFORMATION
  Report Type: Spontaneous
  Country: BR (occurrence: BR)
  Receive Date: 20140218
  Receipt Date: 20140218
  Transmission Date: 20141002
  Serious: Yes (Other)
  Sender: FDA-Public Use
  Company Number: BR-SA-2014SA013011

PATIENT
  Age: 40 Year
  Sex: Female
  Weight: 46 kg

DRUGS (4)
  1. LANTUS [Suspect]
     Indication: TYPE 2 DIABETES MELLITUS
     Dosage: DOSE:10 UNIT(S)
     Route: 058
     Dates: start: 20120929
  2. CLIKSTAR [Concomitant]
  3. PURAN T4 [Concomitant]
     Indication: HYPOTHYROIDISM
     Dates: start: 2011
  4. SUPRELLE [Concomitant]
     Indication: HORMONE REPLACEMENT THERAPY
     Dates: start: 2010

REACTIONS (7)
  - Conjunctivitis [Recovered/Resolved]
  - Ocular hyperaemia [Recovered/Resolved]
  - Lacrimation increased [Recovered/Resolved]
  - Abnormal sensation in eye [Recovered/Resolved]
  - Lacrimation increased [Recovered/Resolved]
  - Blood glucose increased [Recovered/Resolved]
  - Hyperglycaemia [Unknown]
